FAERS Safety Report 15198542 (Version 1)
Quarter: 2018Q3

REPORT INFORMATION
  Report Type: Spontaneous
  Country: US (occurrence: US)
  Receive Date: 20180627
  Receipt Date: 20180627
  Transmission Date: 20181010
  Serious: Yes (Hospitalization)
  Sender: FDA-Public Use
  Company Number: None

PATIENT
  Age: 33 Year
  Sex: Male
  Weight: 130.8 kg

DRUGS (4)
  1. METHOTREXATE. [Suspect]
     Active Substance: METHOTREXATE
     Dates: end: 20180604
  2. ETOPOSIDE (VP?16) [Suspect]
     Active Substance: ETOPOSIDE
     Dates: end: 20180608
  3. CYTARABINE. [Suspect]
     Active Substance: CYTARABINE
     Dates: end: 20180608
  4. ONCASPAR [Suspect]
     Active Substance: PEGASPARGASE
     Dates: end: 20180531

REACTIONS (13)
  - Metabolic acidosis [None]
  - Septic shock [None]
  - Febrile neutropenia [None]
  - Nausea [None]
  - Pain [None]
  - Hypotension [None]
  - Chills [None]
  - Vomiting [None]
  - Anaemia [None]
  - Cough [None]
  - Dyspnoea [None]
  - Thrombocytopenia [None]
  - Liver disorder [None]

NARRATIVE: CASE EVENT DATE: 20180620
